FAERS Safety Report 8190085 (Version 4)
Quarter: 2016Q1

REPORT INFORMATION
  Report Type: Report from Study
  Country: JP (occurrence: JP)
  Receive Date: 20111019
  Receipt Date: 20160209
  Transmission Date: 20160526
  Serious: Yes (Other)
  Sender: FDA-Public Use
  Company Number: JP-AMGEN-JPNSP2011053130

PATIENT
  Age: 41 Year
  Sex: Female
  Weight: 71 kg

DRUGS (7)
  1. MEIACT [Concomitant]
     Active Substance: CEFDITOREN PIVOXIL
     Indication: OTITIS MEDIA
     Dosage: 100 MG, TID
     Route: 048
     Dates: start: 20110825, end: 20110829
  2. INCREMIN                           /00023544/ [Concomitant]
     Indication: IRON DEFICIENCY ANAEMIA
     Dosage: 5 MG, QD
     Route: 048
     Dates: start: 20110519, end: 20110927
  3. NEUZYM [Concomitant]
     Active Substance: LYSOZYME HYDROCHLORIDE
     Indication: OTITIS MEDIA
     Dosage: UNK
     Route: 047
  4. SELBEX [Concomitant]
     Active Substance: TEPRENONE
     Indication: PROPHYLAXIS
     Dosage: UNK
     Route: 048
  5. OMEPRAL                            /00661201/ [Concomitant]
     Active Substance: OMEPRAZOLE
     Indication: PROPHYLAXIS
     Dosage: 20 MG, QD
     Route: 048
     Dates: start: 20070713, end: 20110927
  6. ROMIPLOSTIM [Suspect]
     Active Substance: ROMIPLOSTIM
     Indication: IMMUNE THROMBOCYTOPENIC PURPURA
     Dosage: 1 MUG/KG, QWK
     Route: 058
     Dates: start: 20110812, end: 20110909
  7. LOXONIN [Concomitant]
     Active Substance: LOXOPROFEN SODIUM
     Indication: OTITIS MEDIA
     Dosage: 60 MG, QD
     Route: 048
     Dates: start: 20110825, end: 20110829

REACTIONS (1)
  - Autoimmune haemolytic anaemia [Recovered/Resolved]

NARRATIVE: CASE EVENT DATE: 20110915
